FAERS Safety Report 6061270-X (Version None)
Quarter: 2009Q1

REPORT INFORMATION
  Report Type: 
  Country: None (occurrence: None)
  Receive Date: 20090202
  Receipt Date: 20090129
  Transmission Date: 20090719
  Serious: Yes (Other)
  Sender: FDA-Public Use
  Company Number: US-BAYER-200814135BCC

PATIENT

DRUGS (3)
  1. ASPIRIN [Suspect]
     Indication: STENT PLACEMENT
  2. PLAVIX [Suspect]
     Indication: STENT PLACEMENT
     Dosage: AS USED: 75 MG  UNIT DOSE: 75 MG
     Route: 048
  3. COUMADIN [Suspect]
     Indication: STENT PLACEMENT
     Route: 065

REACTIONS (1)
  - HAEMORRHAGE [None]
